FAERS Safety Report 9526958 (Version 2)
Quarter: 2013Q3

REPORT INFORMATION
  Report Type: Spontaneous
  Country: US (occurrence: US)
  Receive Date: 20130916
  Receipt Date: 20130925
  Transmission Date: 20140515
  Serious: No
  Sender: FDA-Public Use
  Company Number: US-ASTRAZENECA-2013SE47692

PATIENT
  Sex: Female

DRUGS (1)
  1. SYMBICORT [Suspect]
     Dosage: 160/4.5 MCG 2 PUFFS TWO TIMES A DAY
     Route: 055

REACTIONS (3)
  - Visual acuity reduced [Unknown]
  - Intentional drug misuse [Unknown]
  - Wrong technique in drug usage process [Unknown]
